FAERS Safety Report 6457810-9 (Version None)
Quarter: 2009Q4

REPORT INFORMATION
  Report Type: 
  Country: None (occurrence: None)
  Receive Date: 20091125
  Receipt Date: 20091117
  Transmission Date: 20100525
  Serious: Yes (Hospitalization)
  Sender: FDA-Public Use
  Company Number: US-ELI_LILLY_AND_COMPANY-US200911004585

PATIENT
  Sex: Female
  Weight: 62.132 kg

DRUGS (17)
  1. BYETTA [Suspect]
     Indication: TYPE 2 DIABETES MELLITUS
     Dosage: 5 UG, 2/D
     Route: 058
     Dates: start: 20070101, end: 20070101
  2. BYETTA [Suspect]
     Dosage: 10 UG, 2/D
     Route: 058
     Dates: start: 20070101
  3. METFORMIN HCL [Concomitant]
     Indication: TYPE 2 DIABETES MELLITUS
     Dosage: 1000 MG, 2/D
     Route: 048
  4. SIMVASTATIN [Concomitant]
     Dosage: UNK, DAILY (1/D)
     Route: 048
  5. LISINOPRIL [Concomitant]
     Indication: BLOOD PRESSURE
     Dosage: 40 MG, DAILY (1/D)
     Route: 048
  6. FLEXERIL [Concomitant]
     Indication: NECK PAIN
     Dosage: 30 MG, EACH EVENING
     Route: 048
  7. IBUPROFEN [Concomitant]
     Indication: NECK PAIN
     Dosage: UNK, 2/D
     Route: 048
  8. TOPIRAMATE [Concomitant]
     Dosage: 25 MG, EACH EVENING
     Route: 048
  9. TRAZODONE HYDROCHLORIDE [Concomitant]
     Dosage: UNK, DAILY (1/D)
     Route: 048
  10. FAMVIR [Concomitant]
     Dosage: 500 MG, 2/D
     Route: 048
  11. PROZAC [Concomitant]
     Dosage: 40 MG, DAILY (1/D)
  12. ALLEGRA [Concomitant]
     Dosage: UNK, 4/D
     Route: 048
  13. MULTI-VITAMIN [Concomitant]
     Dosage: UNK, DAILY (1/D)
  14. SUPER B COMPLEX [Concomitant]
     Dosage: UNK, DAILY (1/D)
  15. CITRACAL [Concomitant]
     Dosage: UNK, UNKNOWN
  16. VITAMIN D [Concomitant]
     Dosage: UNK, UNKNOWN
  17. LOVAZA [Concomitant]
     Dosage: UNK, UNKNOWN

REACTIONS (8)
  - BARRETT'S OESOPHAGUS [None]
  - BLADDER PROLAPSE [None]
  - DECREASED APPETITE [None]
  - EXOSTOSIS [None]
  - HIATUS HERNIA [None]
  - NAUSEA [None]
  - VAGINAL PROLAPSE [None]
  - WEIGHT DECREASED [None]
